FAERS Safety Report 6739955-9 (Version None)
Quarter: 2010Q2

REPORT INFORMATION
  Report Type: 
  Country: None (occurrence: None)
  Receive Date: 20100525
  Receipt Date: 20100513
  Transmission Date: 20101027
  Serious: Yes (Hospitalization)
  Sender: FDA-Public Use
  Company Number: US-WYE-H15140310

PATIENT
  Sex: Female

DRUGS (8)
  1. PRISTIQ [Suspect]
     Indication: DEPRESSION
     Dates: start: 20100201
  2. NEXIUM [Concomitant]
  3. AMBIEN [Concomitant]
     Indication: INSOMNIA
  4. HYDROCHLOROTHIAZIDE [Concomitant]
  5. OXYCODONE [Concomitant]
  6. METOPROLOL [Concomitant]
  7. SYNTHROID [Concomitant]
  8. PRAVASTATIN [Concomitant]

REACTIONS (3)
  - PNEUMONIA [None]
  - STREPTOCOCCAL INFECTION [None]
  - WEIGHT INCREASED [None]
